FAERS Safety Report 5111644-6 (Version None)
Quarter: 2006Q3

REPORT INFORMATION
  Report Type: 
  Country: None (occurrence: None)
  Receive Date: 20060920
  Receipt Date: 20060920
  Transmission Date: 20061208
  Serious: Yes (Other)
  Sender: FDA-Public Use
  Company Number: None

PATIENT
  Age: 52 Year
  Sex: Male
  Weight: 140.6151 kg

DRUGS (1)
  1. CHANTIX [Suspect]
     Indication: SMOKING CESSATION THERAPY
     Dosage: 0.5 MG ONCE PER DAY PO
     Route: 048
     Dates: start: 20060916, end: 20060918

REACTIONS (3)
  - DYSPNOEA [None]
  - NAUSEA [None]
  - SOMNOLENCE [None]
